FAERS Safety Report 14966815 (Version 1)
Quarter: 2018Q2

REPORT INFORMATION
  Report Type: Spontaneous
  Country: ES (occurrence: ES)
  Receive Date: 20180604
  Receipt Date: 20180604
  Transmission Date: 20180711
  Serious: Yes (Hospitalization)
  Sender: FDA-Public Use
  Company Number: ES-CHEPLA-1956485

PATIENT
  Age: 87 Year
  Sex: Male

DRUGS (5)
  1. XENICAL [Suspect]
     Active Substance: ORLISTAT
     Indication: CONSTIPATION
     Dosage: 1 TABLET A DAY, BEFORE LUNCH
     Route: 065
  2. PARACETAMOL [Concomitant]
     Active Substance: ACETAMINOPHEN
     Indication: PAIN
  3. ASPIRIN. [Concomitant]
     Active Substance: ASPIRIN
     Route: 065
  4. NOLOTIL (DIPYRONE) [Concomitant]
     Active Substance: METAMIZOLE
     Indication: PAIN
  5. ARCOXIA [Interacting]
     Active Substance: ETORICOXIB
     Indication: ARTHRALGIA
     Route: 065

REACTIONS (6)
  - Blood creatinine increased [Unknown]
  - Acute kidney injury [Unknown]
  - Nephropathy [Unknown]
  - Intentional product misuse [Unknown]
  - Drug interaction [Unknown]
  - Product use in unapproved indication [Unknown]

NARRATIVE: CASE EVENT DATE: 201702
